FAERS Safety Report 10705817 (Version 1)
Quarter: 2015Q1

REPORT INFORMATION
  Report Type: Spontaneous
  Country: US (occurrence: US)
  Receive Date: 20150112
  Receipt Date: 20150112
  Transmission Date: 20150721
  Serious: Yes (Other)
  Sender: FDA-Public Use
  Company Number: US-AMGEN-USASP2015001129

PATIENT
  Sex: Female

DRUGS (15)
  1. TRAMADOL [Concomitant]
     Active Substance: TRAMADOL
  2. VALIUM [Concomitant]
     Active Substance: DIAZEPAM
  3. ATENOLOL. [Concomitant]
     Active Substance: ATENOLOL
  4. LEUCORIN [Concomitant]
  5. VICODIN [Concomitant]
     Active Substance: ACETAMINOPHEN\HYDROCODONE BITARTRATE
  6. FOLIC ACID. [Concomitant]
     Active Substance: FOLIC ACID
  7. METHOTREXATE [Concomitant]
     Active Substance: METHOTREXATE
  8. OMEPRAZOLE. [Concomitant]
     Active Substance: OMEPRAZOLE
  9. REMICADE [Concomitant]
     Active Substance: INFLIXIMAB
  10. ALEVE [Concomitant]
     Active Substance: NAPROXEN SODIUM
  11. ASPIRIN                            /00002701/ [Concomitant]
     Active Substance: ASPIRIN
  12. PROLIA [Suspect]
     Active Substance: DENOSUMAB
     Indication: OSTEOPOROSIS POSTMENOPAUSAL
     Route: 065
  13. CITRACAL                           /00751520/ [Concomitant]
  14. PLAQUENIL [Concomitant]
     Active Substance: HYDROXYCHLOROQUINE SULFATE
  15. VITAMIN D3 [Concomitant]
     Active Substance: CHOLECALCIFEROL

REACTIONS (3)
  - Blood parathyroid hormone increased [Unknown]
  - Blood calcium increased [Unknown]
  - Rheumatoid arthritis [Unknown]
